FAERS Safety Report 25387874 (Version 1)
Quarter: 2025Q2

REPORT INFORMATION
  Report Type: Spontaneous
  Country: JP (occurrence: JP)
  Receive Date: 20250603
  Receipt Date: 20250603
  Transmission Date: 20250717
  Serious: Yes (Hospitalization)
  Sender: MERCK SHARP & DOHME LLC
  Company Number: JP-009507513-2289331

PATIENT
  Age: 40 Year
  Sex: Male

DRUGS (3)
  1. KEYTRUDA [Suspect]
     Active Substance: PEMBROLIZUMAB
     Indication: Microsatellite instability cancer
     Route: 041
     Dates: start: 20250401, end: 20250401
  2. TS-1 [Concomitant]
     Active Substance: GIMERACIL\OTERACIL POTASSIUM\TEGAFUR
     Indication: Microsatellite instability cancer
     Route: 048
     Dates: start: 20250401, end: 202504
  3. OXALIPLATIN [Concomitant]
     Active Substance: OXALIPLATIN
     Indication: Microsatellite instability cancer
     Route: 041
     Dates: start: 20250401, end: 202504

REACTIONS (4)
  - Febrile neutropenia [Unknown]
  - Haemophagocytic lymphohistiocytosis [Unknown]
  - Hepatic function abnormal [Recovering/Resolving]
  - Pyrexia [Unknown]

NARRATIVE: CASE EVENT DATE: 20250401
